FAERS Safety Report 8267106-0 (Version None)
Quarter: 2012Q2

REPORT INFORMATION
  Report Type: 
  Country: None (occurrence: None)
  Receive Date: 20120409
  Receipt Date: 20111222
  Transmission Date: 20120825
  Serious: Yes (Other)
  Sender: FDA-Public Use
  Company Number: CA-JNJFOC-20111207628

PATIENT
  Sex: Female
  Weight: 67 kg

DRUGS (7)
  1. REMICADE [Suspect]
     Dosage: 8/52
     Route: 042
     Dates: start: 20071101
  2. VITAMIN D [Concomitant]
     Route: 048
  3. MICRONOR [Concomitant]
     Route: 065
  4. REMICADE [Suspect]
     Indication: CROHN'S DISEASE
     Dosage: REMICADE PROTOCOL FOLLOWED WITH RATES OF INCREASE 10,20,40,80,100,125 ETC
     Route: 042
     Dates: start: 20120321
  5. DOMPERIDONE [Concomitant]
     Indication: LACTATION DISORDER
     Route: 048
  6. FERROMAX [Concomitant]
     Route: 048
  7. BENADRYL [Concomitant]
     Indication: PREMEDICATION
     Route: 065

REACTIONS (2)
  - MATERNAL EXPOSURE DURING PREGNANCY [None]
  - CAESAREAN SECTION [None]
